FAERS Safety Report 8019915-0 (Version None)
Quarter: 2012Q1

REPORT INFORMATION
  Report Type: 
  Country: None (occurrence: None)
  Receive Date: 20120103
  Receipt Date: 20111227
  Transmission Date: 20120608
  Serious: Yes (Hospitalization, Other)
  Sender: FDA-Public Use
  Company Number: US-BAYER-2011-054977

PATIENT
  Age: 31 Year
  Sex: Female
  Weight: 77.098 kg

DRUGS (19)
  1. YAZ [Suspect]
     Indication: CONTRACEPTION
     Dosage: UNK
     Dates: start: 20060101, end: 20060301
  2. YAZ [Suspect]
     Indication: PREMENSTRUAL SYNDROME
  3. YASMIN [Suspect]
     Indication: CONTRACEPTION
     Dosage: UNK
     Dates: start: 20060101, end: 20060301
  4. YASMIN [Suspect]
     Indication: PREMENSTRUAL SYNDROME
  5. LIPITOR [Concomitant]
     Dosage: UNK
     Dates: start: 20090501, end: 20091001
  6. CLINDAMYCIN [Concomitant]
     Dosage: 300 MG, QID
  7. LUNESTA [Concomitant]
     Dosage: 1 U, HS
  8. DROSPIRENONE AND ETHINYL ESTRADIOL [Suspect]
     Indication: CONTRACEPTION
     Dosage: UNK
     Dates: start: 20060101, end: 20060301
  9. ZOMIG [Concomitant]
     Dosage: UNK
     Dates: start: 20050101
  10. DILAUDID [Concomitant]
     Dosage: UNK
     Dates: start: 20090801, end: 20091001
  11. DROSPIRENONE AND ETHINYL ESTRADIOL [Suspect]
     Indication: ACNE
     Dosage: UNK
     Dates: start: 20070801, end: 20090901
  12. VALIUM [Concomitant]
     Dosage: 10 MG, PRN
  13. YASMIN [Suspect]
     Indication: ACNE
     Dosage: UNK
     Dates: start: 20070801, end: 20090901
  14. DROSPIRENONE AND ETHINYL ESTRADIOL [Suspect]
     Indication: PREMENSTRUAL SYNDROME
  15. TORADOL [Concomitant]
     Dosage: 30 MG, UNK
  16. YAZ [Suspect]
     Indication: ACNE
     Dosage: UNK
     Dates: start: 20070801, end: 20090901
  17. IMITREX [Concomitant]
     Dosage: UNK
     Dates: start: 20050101
  18. OXYCONTIN [Concomitant]
     Dosage: UNK
     Dates: start: 20050101, end: 20100401
  19. MS CONTIN [Concomitant]
     Dosage: UNK
     Dates: start: 20050101, end: 20100401

REACTIONS (10)
  - MYOCARDIAL INFARCTION [None]
  - ANXIETY [None]
  - FEAR [None]
  - PAIN [None]
  - ANHEDONIA [None]
  - CEREBROVASCULAR ACCIDENT [None]
  - INJURY [None]
  - DEEP VEIN THROMBOSIS [None]
  - PULMONARY EMBOLISM [None]
  - GALLBLADDER DISORDER [None]
